FAERS Safety Report 5258273-1 (Version None)
Quarter: 2007Q1

REPORT INFORMATION
  Report Type: 
  Country: None (occurrence: None)
  Receive Date: 20070308
  Receipt Date: 20070302
  Transmission Date: 20070707
  Serious: Yes (Hospitalization)
  Sender: FDA-Public Use
  Company Number: GB-JNJFOC-20070301392

PATIENT
  Age: 26 Year
  Sex: Female
  Weight: 94 kg

DRUGS (5)
  1. REMICADE [Suspect]
     Indication: CROHN'S DISEASE
     Route: 050
  2. AZATHIOPRINE [Concomitant]
     Route: 048
  3. ACETAMINOPHEN [Concomitant]
     Indication: PAIN
     Route: 048
  4. PREDNISOLONE [Concomitant]
     Indication: CROHN'S DISEASE
     Route: 048
  5. SENNA [Concomitant]
     Route: 048

REACTIONS (5)
  - ASTIGMATISM [None]
  - COORDINATION ABNORMAL [None]
  - DIPLOPIA [None]
  - HEADACHE [None]
  - RASH GENERALISED [None]
